FAERS Safety Report 4613695-4 (Version None)
Quarter: 2005Q1

REPORT INFORMATION
  Report Type: 
  Country: None (occurrence: None)
  Receive Date: 20050321
  Receipt Date: 20050315
  Transmission Date: 20050727
  Serious: Yes (Life-Threatening, Hospitalization)
  Sender: FDA-Public Use
  Company Number: ES-BOEHRINGER INGELHEIM PHARMACEUTICALS, INC.-2005-BP-04386RO

PATIENT
  Age: 77 Year
  Sex: Male

DRUGS (12)
  1. CLARITHROMYCIN [Suspect]
     Indication: UPPER RESPIRATORY TRACT INFECTION
     Dosage: 500 MG Q12H
     Route: 048
     Dates: start: 20031201, end: 20031201
  2. CLARITHROMYCIN [Suspect]
     Dosage: 500 MG Q12H
     Route: 048
     Dates: start: 20031201
  3. NIFEDIPINE [Suspect]
     Indication: HYPERTENSION
     Dosage: 60 MG Q12H
     Route: 048
     Dates: start: 20031001, end: 20031201
  4. NIFEDIPINE [Suspect]
     Dosage: 60 MG QD
     Route: 048
     Dates: start: 20031201
  5. DOXAZOSIN [Concomitant]
     Indication: HYPERTENSION
     Route: 048
  6. CAPTOPRIL [Concomitant]
     Route: 048
  7. VALSARTAN [Concomitant]
     Indication: HYPERTENSION
     Route: 048
  8. METFORMIN HCL [Concomitant]
     Indication: DIABETES MELLITUS
     Route: 048
  9. GLIBENCLAMIDE [Concomitant]
     Indication: DIABETES MELLITUS
     Route: 048
  10. ASPIRIN [Concomitant]
     Route: 048
  11. ALBUTEROL [Concomitant]
     Route: 055
  12. BUDESONIDE [Concomitant]
     Route: 055

REACTIONS (3)
  - DEPRESSED LEVEL OF CONSCIOUSNESS [None]
  - DRUG INTERACTION [None]
  - SHOCK [None]
